FAERS Safety Report 17904912 (Version 1)
Quarter: 2020Q2

REPORT INFORMATION
  Report Type: Spontaneous
  Country: US (occurrence: US)
  Receive Date: 20200617
  Receipt Date: 20200617
  Transmission Date: 20200714
  Serious: No
  Sender: FDA-Public Use
  Company Number: US-ALLERGAN-1942123US

PATIENT
  Age: 43 Year
  Sex: Male

DRUGS (1)
  1. VIBERZI [Suspect]
     Active Substance: ELUXADOLINE
     Indication: GASTROINTESTINAL DISORDER
     Dosage: 2 DF
     Dates: start: 20191015

REACTIONS (3)
  - Off label use [Unknown]
  - Abdominal pain upper [Recovering/Resolving]
  - Incorrect dose administered [Unknown]

NARRATIVE: CASE EVENT DATE: 20191015
